FAERS Safety Report 23181756 (Version 1)
Quarter: 2023Q4

REPORT INFORMATION
  Report Type: Spontaneous
  Country: US (occurrence: US)
  Receive Date: 20231114
  Receipt Date: 20231114
  Transmission Date: 20240110
  Serious: No
  Sender: FDA-Public Use
  Company Number: US-GILEAD-2023-0650956

PATIENT
  Age: 65 Year
  Sex: Female

DRUGS (1)
  1. RANEXA [Suspect]
     Active Substance: RANOLAZINE
     Indication: Angina pectoris
     Route: 065

REACTIONS (2)
  - Pain [Not Recovered/Not Resolved]
  - Therapy interrupted [Not Recovered/Not Resolved]
